FAERS Safety Report 18031243 (Version 1)
Quarter: 2020Q3

REPORT INFORMATION
  Report Type: Spontaneous
  Country: US (occurrence: US)
  Receive Date: 20200715
  Receipt Date: 20200715
  Transmission Date: 20201103
  Serious: Yes (Life-Threatening, Disabling, Other)
  Sender: FDA-Public Use
  Company Number: None

PATIENT
  Age: 45 Year
  Sex: Female
  Weight: 81.65 kg

DRUGS (3)
  1. PAIN MEDICATIONS [Concomitant]
     Active Substance: UNSPECIFIED INGREDIENT
  2. ALBUTERAL SULFATE INHALATION AEROSOL 90 MCG PER ACTUATION [Suspect]
     Active Substance: ALBUTEROL SULFATE
     Indication: ASTHMA
     Dosage: ?          QUANTITY:200 ;?
     Route: 055
     Dates: start: 20200403, end: 20200714
  3. ALBUTERAL SULFATE INHALATION AEROSOL 90 MCG PER ACTUATION [Suspect]
     Active Substance: ALBUTEROL SULFATE
     Indication: BRONCHIECTASIS
     Dosage: ?          QUANTITY:200 ;?
     Route: 055
     Dates: start: 20200403, end: 20200714

REACTIONS (3)
  - Drug ineffective [None]
  - Off label use [None]
  - Asphyxia [None]

NARRATIVE: CASE EVENT DATE: 20200403
